FAERS Safety Report 5020441-1 (Version None)
Quarter: 2006Q2

REPORT INFORMATION
  Report Type: 
  Country: None (occurrence: None)
  Receive Date: 20060602
  Receipt Date: 20060517
  Transmission Date: 20061013
  Serious: No
  Sender: FDA-Public Use
  Company Number: VISP-NO-0604S-0234

PATIENT
  Age: 75 Year
  Sex: Female
  Weight: 60 kg

DRUGS (2)
  1. VISIPAQUE [Suspect]
     Indication: NASAL SINUS CANCER
     Dosage: 75 ML, SINGLE DOSE, I.V.
     Route: 042
     Dates: start: 20060407, end: 20060407
  2. VISIPAQUE [Suspect]

REACTIONS (5)
  - ANXIETY [None]
  - NAUSEA [None]
  - PROCEDURAL COMPLICATION [None]
  - SYNCOPE [None]
  - TREMOR [None]
